FAERS Safety Report 7967177-2 (Version None)
Quarter: 2011Q4

REPORT INFORMATION
  Report Type: 
  Country: None (occurrence: None)
  Receive Date: 20111209
  Receipt Date: 20111206
  Transmission Date: 20120403
  Serious: Yes (Hospitalization, Other)
  Sender: FDA-Public Use
  Company Number: FR-PFIZER INC-2011297145

PATIENT
  Age: 87 Year
  Sex: Female

DRUGS (9)
  1. DITROPAN [Suspect]
     Dosage: 5 MG, 2X/DAY
     Route: 048
  2. ASPIRIN [Concomitant]
     Indication: EXTRASYSTOLES
     Dosage: 75 MG, 1X/DAY
     Route: 048
  3. LEVOTHYROXINE SODIUM [Concomitant]
     Indication: HYPOTHYROIDISM
     Dosage: 75 UG, 1X/DAY
     Route: 048
  4. SIMVASTATIN [Concomitant]
     Indication: DYSLIPIDAEMIA
     Dosage: 20 MG, 1X/DAY
     Route: 048
     Dates: end: 20111120
  5. KLIPAL CODEINE [Concomitant]
     Dosage: 600 MG/50 MG TO 2400 MG/200 MG DAILY
     Route: 048
     Dates: end: 20111116
  6. NEURONTIN [Suspect]
     Dosage: 600 MG, 3X/DAY
     Route: 048
     Dates: end: 20111118
  7. ACETAMINOPHEN [Concomitant]
     Dosage: 1 TO 4 G DAILY
     Route: 048
     Dates: end: 20111115
  8. MICARDIS [Concomitant]
     Indication: HYPERTENSION
     Dosage: 40 MG, 1X/DAY
     Route: 048
     Dates: end: 20111117
  9. VEINAMITOL [Concomitant]
     Dosage: 3500 MG, 1X/DAY
     Route: 048
     Dates: end: 20111117

REACTIONS (16)
  - DYSKINESIA [None]
  - LUNG INFECTION [None]
  - MEMORY IMPAIRMENT [None]
  - DIZZINESS [None]
  - RENAL FAILURE [None]
  - INCONTINENCE [None]
  - POLLAKIURIA [None]
  - URINE OUTPUT DECREASED [None]
  - AREFLEXIA [None]
  - PYREXIA [None]
  - CONFUSIONAL STATE [None]
  - LIVEDO RETICULARIS [None]
  - ESCHERICHIA TEST POSITIVE [None]
  - TREMOR [None]
  - CULTURE URINE POSITIVE [None]
  - FAECALOMA [None]
